FAERS Safety Report 8439117-3 (Version None)
Quarter: 2012Q2

REPORT INFORMATION
  Report Type: 
  Country: None (occurrence: None)
  Receive Date: 20120615
  Receipt Date: 20120606
  Transmission Date: 20120825
  Serious: Yes (Hospitalization)
  Sender: FDA-Public Use
  Company Number: US-BRISTOL-MYERS SQUIBB COMPANY-16666802

PATIENT
  Sex: Female
  Weight: 86 kg

DRUGS (2)
  1. COUMADIN [Suspect]
     Indication: ATRIAL FIBRILLATION
     Dosage: 4MG FOR 4 DAYS AND 6MG FOR 3 DAYS
  2. WARFARIN SODIUM [Suspect]
     Indication: ATRIAL FIBRILLATION
     Dates: start: 20110101

REACTIONS (4)
  - DIVERTICULITIS [None]
  - PRURITUS [None]
  - INTERNATIONAL NORMALISED RATIO DECREASED [None]
  - ALOPECIA [None]
